FAERS Safety Report 16287283 (Version 1)
Quarter: 2019Q2

REPORT INFORMATION
  Report Type: Spontaneous
  Country: US (occurrence: US)
  Receive Date: 20190508
  Receipt Date: 20190508
  Transmission Date: 20190711
  Serious: No
  Sender: FDA-Public Use
  Company Number: US-NOVOPROD-652338

PATIENT
  Age: 44 Year
  Sex: Male
  Weight: 172.34 kg

DRUGS (1)
  1. NORDITROPIN [Suspect]
     Active Substance: SOMATROPIN
     Indication: PRODUCT USED FOR UNKNOWN INDICATION
     Dosage: UNK
     Route: 058
     Dates: end: 20190118

REACTIONS (3)
  - Fatigue [Unknown]
  - Asthenia [Unknown]
  - Malaise [Unknown]

NARRATIVE: CASE EVENT DATE: 201901
